FAERS Safety Report 7778447-5 (Version None)
Quarter: 2011Q3

REPORT INFORMATION
  Report Type: 
  Country: None (occurrence: None)
  Receive Date: 20110926
  Receipt Date: 20110920
  Transmission Date: 20111222
  Serious: Yes (Hospitalization)
  Sender: FDA-Public Use
  Company Number: JP-GLAXOSMITHKLINE-B0700791A

PATIENT
  Sex: Male

DRUGS (5)
  1. DUTASTERIDE [Suspect]
     Indication: PRODUCT USED FOR UNKNOWN INDICATION
     Dosage: .5MG PER DAY
     Route: 048
     Dates: start: 20100827
  2. CERNILTON [Concomitant]
     Dosage: 6IUAX PER DAY
     Route: 048
     Dates: start: 20110114
  3. ALPHA BLOCKER [Concomitant]
     Dates: start: 20100101
  4. UBRETID [Concomitant]
     Dosage: 1IUAX PER DAY
     Route: 048
     Dates: start: 20110114
  5. URIEF [Concomitant]
     Dosage: 2IUAX PER DAY
     Route: 048

REACTIONS (4)
  - URINARY RETENTION [None]
  - BLADDER TAMPONADE [None]
  - HAEMATURIA [None]
  - PROSTATIC HAEMORRHAGE [None]
